FAERS Safety Report 10064898 (Version 2)
Quarter: 2014Q3

REPORT INFORMATION
  Report Type: Spontaneous
  Country: US (occurrence: None)
  Receive Date: 20140328
  Receipt Date: 20140701
  Transmission Date: 20150326
  Serious: No
  Sender: FDA-Public Use
  Company Number: 1000054458

PATIENT
  Age: 78 Year
  Sex: Male

DRUGS (6)
  1. LINZESS [Suspect]
     Active Substance: LINACLOTIDE
     Indication: CONSTIPATION
     Route: 048
     Dates: start: 20140213, end: 201403
  2. LISINOPRIL (LISINOPRIL) (LISINOPRIL) [Concomitant]
     Active Substance: LISINOPRIL
  3. ALPRAZOLAM (ALPRAZOLAM) (ALPRAZOLAM) [Concomitant]
     Active Substance: ALPRAZOLAM
  4. MEDICATION TO SLOW HEART RATE (NOS) (MEDICATION TO SLOW HEART (NOS)) (MEDICATION TO SLOW HEART RATE (NOSE)) [Concomitant]
  5. BABY ASPIRIN (ACETYLSALICYLIC ACID) (ACETYLSALICYLIC ACID) [Concomitant]
  6. LEXAPRO (ESCITALOPRAM OXALATE) (ESCITALOPRAM OXALATE) [Concomitant]

REACTIONS (2)
  - Drug ineffective [None]
  - Diarrhoea [None]

NARRATIVE: CASE EVENT DATE: 20140213
